FAERS Safety Report 5190800-5 (Version None)
Quarter: 2006Q4

REPORT INFORMATION
  Report Type: 
  Country: None (occurrence: None)
  Receive Date: 20061222
  Receipt Date: 20061205
  Transmission Date: 20070319
  Serious: Yes (Other)
  Sender: FDA-Public Use
  Company Number: NL-AMGEN-UK204022

PATIENT
  Age: 58 Year
  Sex: Female

DRUGS (1)
  1. MIMPARA [Suspect]
     Indication: PRE-EXISTING DISEASE
     Route: 048
     Dates: start: 20061116, end: 20061207

REACTIONS (1)
  - KIDNEY TRANSPLANT REJECTION [None]
